FAERS Safety Report 15453256 (Version 3)
Quarter: 2018Q4

REPORT INFORMATION
  Report Type: Spontaneous
  Country: US (occurrence: US)
  Receive Date: 20181001
  Receipt Date: 20181005
  Transmission Date: 20190204
  Serious: No
  Sender: FDA-Public Use
  Company Number: US-009507513-1809USA007049

PATIENT

DRUGS (1)
  1. PROVENTIL [Suspect]
     Active Substance: ALBUTEROL
     Dosage: UNK
     Route: 055

REACTIONS (3)
  - Product container issue [Not Recovered/Not Resolved]
  - No adverse event [Unknown]
  - Incorrect dose administered [Unknown]
